FAERS Safety Report 5023093-X (Version None)
Quarter: 2006Q2

REPORT INFORMATION
  Report Type: 
  Country: None (occurrence: None)
  Receive Date: 20060428
  Receipt Date: 20051230
  Transmission Date: 20061013
  Serious: Yes (Other)
  Sender: FDA-Public Use
  Company Number: 2006000870

PATIENT
  Age: 20 Year
  Sex: Female
  Weight: 47.6277 kg

DRUGS (1)
  1. BENADRYL [Suspect]
     Indication: ECZEMA
     Dosage: 7 ULTRATABS ONCE DAILY, ORAL
     Route: 048
     Dates: end: 20051225

REACTIONS (3)
  - DRUG EXPOSURE DURING PREGNANCY [None]
  - MEDICATION ERROR [None]
  - NO ADVERSE EFFECT [None]
